FAERS Safety Report 15589752 (Version 1)
Quarter: 2018Q4

REPORT INFORMATION
  Report Type: Spontaneous
  Country: CN (occurrence: CN)
  Receive Date: 20181106
  Receipt Date: 20181106
  Transmission Date: 20190205
  Serious: Yes (Other)
  Sender: FDA-Public Use
  Company Number: CN-ROCHE-2208086

PATIENT
  Age: 48 Year
  Sex: Male
  Weight: 72 kg

DRUGS (3)
  1. RECOMBINANT HUMAN INTERLEUKIN-2 [Concomitant]
     Active Substance: ALDESLEUKIN
     Indication: IMMUNE ENHANCEMENT THERAPY
     Route: 041
     Dates: start: 20180917, end: 20180917
  2. GANCICLOVIR. [Concomitant]
     Active Substance: GANCICLOVIR
     Indication: IMMUNE ENHANCEMENT THERAPY
     Route: 041
     Dates: start: 20180917, end: 20180917
  3. PEGASYS [Suspect]
     Active Substance: PEGINTERFERON ALFA-2A
     Indication: IMMUNE ENHANCEMENT THERAPY
     Route: 030
     Dates: start: 20180917, end: 20180917

REACTIONS (5)
  - Off label use [Unknown]
  - Asthenia [Unknown]
  - Intentional product use issue [Unknown]
  - Chills [Recovered/Resolved]
  - Hyperpyrexia [Recovering/Resolving]

NARRATIVE: CASE EVENT DATE: 20180917
